FAERS Safety Report 13512088 (Version 2)
Quarter: 2017Q4

REPORT INFORMATION
  Report Type: Spontaneous
  Country: CO (occurrence: CO)
  Receive Date: 20170504
  Receipt Date: 20171107
  Transmission Date: 20180320
  Serious: Yes (Disabling)
  Sender: FDA-Public Use
  Company Number: CO-HIKMA PHARMACEUTICALS CO. LTD-2017CO005412

PATIENT

DRUGS (6)
  1. GENTAMYCIN                         /00047101/ [Concomitant]
     Active Substance: GENTAMICIN
  2. INFLIXIMAB [Concomitant]
     Active Substance: INFLIXIMAB
  3. NISTATINA [Concomitant]
     Active Substance: NYSTATIN
  4. TINIDAZOL [Concomitant]
  5. REMSIMA [Suspect]
     Active Substance: INFLIXIMAB
     Indication: PSORIATIC ARTHROPATHY
     Dosage: 300 MG, 6 WEEKS
     Route: 042
     Dates: start: 20151204, end: 20151204
  6. AZITROMYCIN [Concomitant]
     Active Substance: AZITHROMYCIN ANHYDROUS

REACTIONS (2)
  - Inappropriate schedule of drug administration [Unknown]
  - Treatment failure [Unknown]

NARRATIVE: CASE EVENT DATE: 20151204
